FAERS Safety Report 9789667 (Version 1)
Quarter: 2013Q4

REPORT INFORMATION
  Report Type: Spontaneous
  Country: DE (occurrence: None)
  Receive Date: 20131227
  Receipt Date: 20131227
  Transmission Date: 20140711
  Serious: Yes (Other)
  Sender: FDA-Public Use
  Company Number: SYM-2013-14171

PATIENT
  Sex: Male

DRUGS (6)
  1. ELONTRIL [Suspect]
     Indication: FATIGUE
     Route: 048
     Dates: start: 20131112, end: 20131120
  2. GILENYA [Suspect]
     Route: 048
     Dates: start: 20131021
  3. AMANTADINE [Suspect]
     Route: 048
     Dates: start: 201307, end: 20131120
  4. VIGANTOLETTEN (COLECALCIFEROL) (COLECALCIFEROL) [Concomitant]
  5. COPAXONE (GLATIRAMER ACETATE) (GLATIRAMER ACETATE) [Concomitant]
  6. MULTIPLE MEDICATION (OTHER THERAPEUTICS PRODUCTS) (NULL) [Concomitant]

REACTIONS (1)
  - Eye pain [None]
